FAERS Safety Report 9684701 (Version 1)
Quarter: 2013Q4

REPORT INFORMATION
  Report Type: Spontaneous
  Country: US (occurrence: None)
  Receive Date: 20131108
  Receipt Date: 20131108
  Transmission Date: 20140711
  Serious: Yes (Other)
  Sender: FDA-Public Use
  Company Number: 2013AP009412

PATIENT
  Sex: Female

DRUGS (1)
  1. ALENDRONATE SODIUM [Suspect]
     Indication: OSTEOPOROSIS
     Dates: start: 200501, end: 201010

REACTIONS (7)
  - Femur fracture [None]
  - Pain [None]
  - Mental disorder [None]
  - Stress fracture [None]
  - Bone disorder [None]
  - Multiple injuries [None]
  - Emotional distress [None]
